FAERS Safety Report 5852927-1 (Version None)
Quarter: 2008Q3

REPORT INFORMATION
  Report Type: 
  Country: None (occurrence: None)
  Receive Date: 20080814
  Receipt Date: 20080604
  Transmission Date: 20090109
  Serious: Yes (Other)
  Sender: FDA-Public Use
  Company Number: PHEH2008US05104

PATIENT
  Sex: Male

DRUGS (2)
  1. TEKTURNA HCT [Suspect]
     Dosage: 300/25MG
     Dates: start: 20080401
  2. LOTREL [Suspect]

REACTIONS (2)
  - BLOOD PRESSURE FLUCTUATION [None]
  - MALAISE [None]
